FAERS Safety Report 7193931-3 (Version None)
Quarter: 2010Q4

REPORT INFORMATION
  Report Type: 
  Country: None (occurrence: None)
  Receive Date: 20101124
  Receipt Date: 20100811
  Transmission Date: 20110411
  Serious: No
  Sender: FDA-Public Use
  Company Number: 016777

PATIENT
  Age: 17 Year
  Sex: Male
  Weight: 117 kg

DRUGS (4)
  1. LACOSAMIDE [Suspect]
     Indication: EPILEPSY
     Dosage: SEE IMAGE
     Route: 048
     Dates: start: 20100726, end: 20100726
  2. LACOSAMIDE [Suspect]
     Indication: EPILEPSY
     Dosage: SEE IMAGE
     Route: 048
     Dates: start: 20100101
  3. KEPPRA [Concomitant]
  4. DEPAKOTE ER [Concomitant]

REACTIONS (4)
  - ACCIDENTAL OVERDOSE [None]
  - DIZZINESS [None]
  - SOMNOLENCE [None]
  - VOMITING [None]
